FAERS Safety Report 5506372-9 (Version None)
Quarter: 2007Q4

REPORT INFORMATION
  Report Type: 
  Country: None (occurrence: None)
  Receive Date: 20071105
  Receipt Date: 20071025
  Transmission Date: 20080405
  Serious: Yes (Hospitalization)
  Sender: FDA-Public Use
  Company Number: JP-JNJFOC-20071100839

PATIENT
  Age: 75 Year
  Sex: Female

DRUGS (1)
  1. CRAVIT [Suspect]
     Indication: DRUG USE FOR UNKNOWN INDICATION
     Route: 065

REACTIONS (3)
  - LIP HAEMORRHAGE [None]
  - RENAL FAILURE ACUTE [None]
  - STOMATITIS [None]
